FAERS Safety Report 11915087 (Version 4)
Quarter: 2016Q2

REPORT INFORMATION
  Report Type: Report from Study
  Country: US (occurrence: US)
  Receive Date: 20160114
  Receipt Date: 20160422
  Transmission Date: 20160815
  Serious: Yes (Hospitalization)
  Sender: FDA-Public Use
  Company Number: US-AMGEN-USACT2016000389

PATIENT
  Age: 82 Year
  Sex: Female
  Weight: 63.64 kg

DRUGS (15)
  1. LEVOTHYROXINE. [Concomitant]
     Active Substance: LEVOTHYROXINE
     Dosage: UNK
     Dates: start: 2005
  2. ASPIRIN. [Concomitant]
     Active Substance: ASPIRIN
     Dosage: UNK
     Dates: start: 1998
  3. HYDRALAZINE [Concomitant]
     Active Substance: HYDRALAZINE HYDROCHLORIDE
     Dosage: 25 MG, UNK
     Route: 048
     Dates: start: 20150222
  4. VITAMIN C [Concomitant]
     Active Substance: ASCORBIC ACID
     Dosage: UNK
     Dates: start: 20141017
  5. POLYSACCHARIDE IRON [Concomitant]
     Dosage: 30 MG, UNK
     Route: 048
     Dates: start: 20150225
  6. COREG [Concomitant]
     Active Substance: CARVEDILOL
     Dosage: 12.5 MG, UNK
     Route: 048
     Dates: start: 20130723
  7. TRAMADOL. [Concomitant]
     Active Substance: TRAMADOL
     Dosage: UNK
  8. PREFILLED SYRINGE [Suspect]
     Active Substance: UNSPECIFIED INGREDIENT
     Indication: NEPHROGENIC ANAEMIA
     Dosage: UNK
     Route: 058
     Dates: start: 20150119
  9. ULORIC [Concomitant]
     Active Substance: FEBUXOSTAT
     Dosage: UNK
     Dates: start: 201409
  10. TYLENOL [Concomitant]
     Active Substance: ACETAMINOPHEN
     Dosage: UNK
     Dates: start: 1990
  11. FUROSEMIDE. [Concomitant]
     Active Substance: FUROSEMIDE
     Dosage: 60 MG, UNK
     Route: 048
     Dates: start: 20150224
  12. PRORENAL VITAL [Concomitant]
     Dosage: UNK
     Dates: start: 20120420
  13. TRAZODONE [Concomitant]
     Active Substance: TRAZODONE HYDROCHLORIDE
     Dosage: UNK
     Dates: start: 2008
  14. ISOSORBIDE MONONITRATE. [Concomitant]
     Active Substance: ISOSORBIDE MONONITRATE
     Dosage: 30 MG, UNK
     Route: 048
     Dates: start: 20150224
  15. DARBEPOETIN ALFA [Suspect]
     Active Substance: DARBEPOETIN ALFA
     Indication: NEPHROGENIC ANAEMIA
     Dosage: UNK
     Route: 058
     Dates: start: 20150119

REACTIONS (1)
  - Cardiac failure congestive [Recovered/Resolved]

NARRATIVE: CASE EVENT DATE: 20160104
